FAERS Safety Report 9030290 (Version 1)
Quarter: 2013Q1

REPORT INFORMATION
  Report Type: Spontaneous
  Country: GB (occurrence: GB)
  Receive Date: 20130122
  Receipt Date: 20130122
  Transmission Date: 20140127
  Serious: Yes (Death, Hospitalization)
  Sender: FDA-Public Use
  Company Number: PHHY2013GB005402

PATIENT
  Sex: Male

DRUGS (4)
  1. CITALOPRAM [Suspect]
  2. RISPERDAL CONSTA [Suspect]
     Dosage: 1 DF, BIW, FORTNIGHTLY INJECTION
     Route: 030
  3. BENDROFLUMETHIAZIDE [Concomitant]
  4. RAMIPRIL [Concomitant]

REACTIONS (6)
  - Circulatory collapse [Fatal]
  - Suicide attempt [Recovered/Resolved]
  - Suicidal ideation [Unknown]
  - Dyspnoea [Not Recovered/Not Resolved]
  - Depressed mood [Not Recovered/Not Resolved]
  - Weight increased [Unknown]
